FAERS Safety Report 23272397 (Version 1)
Quarter: 2023Q4

REPORT INFORMATION
  Report Type: Spontaneous
  Country: US (occurrence: US)
  Receive Date: 20231207
  Receipt Date: 20231207
  Transmission Date: 20240110
  Serious: Yes (Hospitalization, Other)
  Sender: FDA-Public Use
  Company Number: US-SUN PHARMACEUTICAL INDUSTRIES LTD-2023R1-422266

PATIENT
  Age: 51 Year
  Sex: Male

DRUGS (1)
  1. DEXAMETHASONE [Suspect]
     Active Substance: DEXAMETHASONE
     Indication: Lung adenocarcinoma stage IV
     Dosage: 4 MILLIGRAM
     Route: 065

REACTIONS (4)
  - Hyperglycaemia [Unknown]
  - Polyuria [Unknown]
  - Polydipsia [Unknown]
  - Weight decreased [Unknown]
